FAERS Safety Report 5313358-6 (Version None)
Quarter: 2007Q2

REPORT INFORMATION
  Report Type: 
  Country: None (occurrence: None)
  Receive Date: 20070501
  Receipt Date: 20070423
  Transmission Date: 20071010
  Serious: Yes (Death, Hospitalization, Other)
  Sender: FDA-Public Use
  Company Number: US-NOVOPROD-243466

PATIENT
  Sex: Female
  Weight: 78.005 kg

DRUGS (7)
  1. ACTIVELLA [Suspect]
     Indication: HORMONE REPLACEMENT THERAPY
     Route: 048
     Dates: start: 20020928, end: 20030613
  2. PREMPRO [Suspect]
     Indication: HORMONE REPLACEMENT THERAPY
     Route: 048
     Dates: start: 19960101, end: 20030101
  3. MAXZIDE [Concomitant]
     Indication: DRUG USE FOR UNKNOWN INDICATION
     Dosage: 75 MG, UNK
     Dates: start: 19990101
  4. ZOCOR [Concomitant]
     Indication: DRUG USE FOR UNKNOWN INDICATION
     Dates: start: 19990101, end: 20010101
  5. PRAVACHOL [Concomitant]
     Indication: DRUG USE FOR UNKNOWN INDICATION
     Dosage: 10 MG, UNK
     Dates: start: 20010101, end: 20020101
  6. NORVASC [Concomitant]
     Indication: DRUG USE FOR UNKNOWN INDICATION
     Dosage: 5 MG, UNK
     Dates: start: 19990101
  7. TIMOPTIC [Concomitant]
     Indication: DRUG USE FOR UNKNOWN INDICATION

REACTIONS (2)
  - BREAST CANCER [None]
  - METASTASES TO LIVER [None]
